FAERS Safety Report 7223851-7 (Version None)
Quarter: 2011Q1

REPORT INFORMATION
  Report Type: 
  Country: None (occurrence: None)
  Receive Date: 20110112
  Receipt Date: 20101229
  Transmission Date: 20110831
  Serious: No
  Sender: FDA-Public Use
  Company Number: US-ALLERGAN-1016879US

PATIENT
  Age: 86 Year
  Sex: Female

DRUGS (5)
  1. RESTASIS [Suspect]
     Indication: SYSTEMIC LUPUS ERYTHEMATOSUS
  2. RESTASIS [Suspect]
     Indication: SJOGREN'S SYNDROME
     Dosage: 1 GTT, SINGLE
     Dates: start: 20101228, end: 20101228
  3. REFRESH PLUS [Concomitant]
  4. CELLUVISC [Concomitant]
  5. REFRESH PM [Concomitant]

REACTIONS (3)
  - EYE PAIN [None]
  - EYE SWELLING [None]
  - FOREIGN BODY SENSATION IN EYES [None]
